FAERS Safety Report 9867055 (Version 1)
Quarter: 2014Q1

REPORT INFORMATION
  Report Type: Spontaneous
  Country: GB (occurrence: GB)
  Receive Date: 20140204
  Receipt Date: 20140204
  Transmission Date: 20141002
  Serious: Yes (Other)
  Sender: FDA-Public Use
  Company Number: GB-AMGEN-GBRSP2014007321

PATIENT
  Age: 35 Year
  Sex: Female

DRUGS (3)
  1. ENBREL [Suspect]
     Indication: PSORIASIS
     Dosage: 50 MG, UNK
     Route: 051
     Dates: start: 200609
  2. YASMIN [Concomitant]
     Dosage: UNK
  3. SERTRALINE [Concomitant]
     Dosage: UNK

REACTIONS (3)
  - Alopecia areata [Not Recovered/Not Resolved]
  - Alopecia [Not Recovered/Not Resolved]
  - Emotional distress [Unknown]
